FAERS Safety Report 4895996-8 (Version None)
Quarter: 2005Q4

REPORT INFORMATION
  Report Type: 
  Country: None (occurrence: None)
  Receive Date: 20051220
  Receipt Date: 20050210
  Transmission Date: 20060501
  Serious: Yes (Other)
  Sender: FDA-Public Use
  Company Number: US110878

PATIENT
  Age: 65 Year
  Sex: Male

DRUGS (14)
  1. ENBREL [Suspect]
     Indication: RHEUMATOID ARTHRITIS
     Dosage: 25 MG, 2 IN 1 WEEKS, SC
     Route: 058
     Dates: start: 19990401
  2. METHOTREXATE [Concomitant]
  3. LEFLUNOMIDE [Concomitant]
  4. ALENDRONATE SODIUM [Concomitant]
  5. VALDECOXIB [Concomitant]
  6. ATORVASTATIN CALCIUM [Concomitant]
  7. SUCRALFATE [Concomitant]
  8. MISOPROSTOL [Concomitant]
  9. CLOPIDOGREL BISULFATE [Concomitant]
  10. AMLODIPINE BESYLATE [Concomitant]
  11. FOLIC ACID [Concomitant]
  12. VICODIN [Concomitant]
  13. BISOPROLOL [Concomitant]
  14. HYDROCHLOROTHIAZIDE [Concomitant]

REACTIONS (1)
  - SMALL CELL LUNG CANCER STAGE UNSPECIFIED [None]
